FAERS Safety Report 8797461 (Version 2)
Quarter: 2012Q4

REPORT INFORMATION
  Report Type: 
  Country: US (occurrence: US)
  Receive Date: 20120920
  Receipt Date: 20121105
  Transmission Date: 20130627
  Serious: No
  Sender: FDA-Public Use
  Company Number: US-PFIZER INC-2012232191

PATIENT
  Age: 49 Year
  Sex: Female
  Weight: 50.79 kg

DRUGS (7)
  1. EFFEXOR [Suspect]
     Indication: DEPRESSION
     Dosage: 150 mg daily
     Route: 048
  2. EFFEXOR [Suspect]
     Indication: ANXIETY
     Dosage: 75 mg, 1x/day
     Route: 048
  3. EFFEXOR [Suspect]
     Dosage: 37.5 mg, 1x/day
     Route: 048
  4. EFFEXOR [Suspect]
     Dosage: 37.5 mg, alternate day
     Route: 048
  5. EFFEXOR [Suspect]
     Dosage: 37.5 mg, skipped dose of venlafaxine for two days and taking it on third day
     Route: 048
  6. VENLAFAXINE HYDROCHLORIDE [Suspect]
     Dosage: UNK
  7. VIVELLE [Concomitant]
     Indication: HORMONE REPLACEMENT THERAPY
     Dosage: UNK

REACTIONS (8)
  - Fatigue [Unknown]
  - Drug intolerance [Unknown]
  - Personality change [Unknown]
  - Influenza like illness [Unknown]
  - Dizziness [Unknown]
  - Chills [Unknown]
  - Feeling abnormal [Unknown]
  - Bone pain [Unknown]
